FAERS Safety Report 4744772-5 (Version None)
Quarter: 2005Q3

REPORT INFORMATION
  Report Type: 
  Country: None (occurrence: None)
  Receive Date: 20050812
  Receipt Date: 20050812
  Transmission Date: 20060218
  Serious: Yes (Hospitalization, Other)
  Sender: FDA-Public Use
  Company Number: None

PATIENT
  Sex: Female
  Weight: 60 kg

DRUGS (4)
  1. CYCLOPHOSPHAMIDE [Suspect]
     Indication: BREAST CANCER
     Dosage: SEE IMAGE
     Dates: start: 20050209, end: 20050504
  2. DOXORUBICIN HCL [Suspect]
     Dosage: SEE IMAGE
     Dates: start: 20050209, end: 20050504
  3. TAXOL [Suspect]
     Dosage: SEE IMAGE
     Dates: start: 20050525, end: 20050803
  4. NEULASTA [Suspect]
     Dosage: SEE IMAGE
     Dates: start: 20050210, end: 20050804

REACTIONS (5)
  - CARDIAC INFECTION [None]
  - COUGH [None]
  - EJECTION FRACTION DECREASED [None]
  - MALAISE [None]
  - SEPSIS [None]
